FAERS Safety Report 7975829-3 (Version None)
Quarter: 2011Q4

REPORT INFORMATION
  Report Type: 
  Country: None (occurrence: None)
  Receive Date: 20111213
  Receipt Date: 20110927
  Transmission Date: 20120403
  Serious: No
  Sender: FDA-Public Use
  Company Number: US-AMGEN-USASP2011049957

PATIENT
  Age: 53 Year
  Sex: Female

DRUGS (1)
  1. ENBREL [Suspect]
     Indication: PSORIATIC ARTHROPATHY
     Dosage: 50 MG, 2 TIMES/WK
     Dates: start: 20110816

REACTIONS (6)
  - MUSCULOSKELETAL CHEST PAIN [None]
  - INJECTION SITE ERYTHEMA [None]
  - PAIN [None]
  - ABDOMINAL PAIN [None]
  - INJECTION SITE REACTION [None]
  - INJECTION SITE NODULE [None]
